FAERS Safety Report 13457933 (Version 1)
Quarter: 2017Q2

REPORT INFORMATION
  Report Type: Spontaneous
  Country: US (occurrence: US)
  Receive Date: 20170419
  Receipt Date: 20170419
  Transmission Date: 20170830
  Serious: Yes (Other)
  Sender: FDA-Public Use
  Company Number: US-SUN PHARMACEUTICAL INDUSTRIES LTD-2017US-138570

PATIENT
  Sex: Female

DRUGS (2)
  1. TAXOTERE [Suspect]
     Active Substance: DOCETAXEL
     Indication: BREAST CANCER
     Route: 065
  2. DOCEFREZ [Suspect]
     Active Substance: DOCETAXEL ANHYDROUS
     Indication: BREAST CANCER
     Route: 065

REACTIONS (7)
  - Impaired quality of life [Unknown]
  - Emotional distress [Unknown]
  - Alopecia [Unknown]
  - Economic problem [Unknown]
  - Depression [Unknown]
  - Anxiety [Unknown]
  - Discomfort [Unknown]
